FAERS Safety Report 10528001 (Version 2)
Quarter: 2014Q4

REPORT INFORMATION
  Report Type: Spontaneous
  Country: AU (occurrence: AU)
  Receive Date: 20141020
  Receipt Date: 20141219
  Transmission Date: 20150528
  Serious: Yes (Other)
  Sender: FDA-Public Use
  Company Number: AU-ELI_LILLY_AND_COMPANY-AU201410002804

PATIENT
  Sex: Male

DRUGS (1)
  1. ZYPREXA [Suspect]
     Active Substance: OLANZAPINE
     Indication: PRODUCT USED FOR UNKNOWN INDICATION
     Dosage: UNK, UNKNOWN
     Route: 065

REACTIONS (11)
  - Renal failure [Unknown]
  - Concussion [Unknown]
  - Bone cancer [Unknown]
  - Muscular weakness [Unknown]
  - Injection site pain [Unknown]
  - General physical health deterioration [Unknown]
  - Seizure [Unknown]
  - Neutropenia [Unknown]
  - Pancreatitis [Unknown]
  - Psychotic disorder [Unknown]
  - Depression [Unknown]
